FAERS Safety Report 15779783 (Version 7)
Quarter: 2019Q4

REPORT INFORMATION
  Report Type: Report from Study
  Country: GB (occurrence: GB)
  Receive Date: 20190102
  Receipt Date: 20191224
  Transmission Date: 20200122
  Serious: Yes (Hospitalization, Other)
  Sender: FDA-Public Use
  Company Number: GB-BRISTOL-MYERS SQUIBB COMPANY-BMS-2018-045110

PATIENT
  Sex: Female

DRUGS (2)
  1. ABATACEPT [Suspect]
     Active Substance: ABATACEPT
     Indication: RHEUMATOID ARTHRITIS
     Dosage: 125 MG, QWK
     Route: 058
     Dates: start: 20180417
  2. PARACETAMOL [Concomitant]
     Active Substance: ACETAMINOPHEN
     Indication: PRODUCT USED FOR UNKNOWN INDICATION
     Dosage: DAILY
     Route: 065

REACTIONS (12)
  - Dyspnoea [Unknown]
  - Blood pressure fluctuation [Recovered/Resolved]
  - Fall [Unknown]
  - Lower respiratory tract infection [Unknown]
  - Eye discharge [Unknown]
  - Arthropathy [Unknown]
  - Sputum discoloured [Unknown]
  - Pain [Unknown]
  - Rheumatoid arthritis [Unknown]
  - Infection [Unknown]
  - Condition aggravated [Unknown]
  - Muscle disorder [Unknown]
